FAERS Safety Report 9379127 (Version 1)
Quarter: 2013Q3

REPORT INFORMATION
  Report Type: Spontaneous
  Country: IT (occurrence: IT)
  Receive Date: 20130702
  Receipt Date: 20130702
  Transmission Date: 20140515
  Serious: Yes (Life-Threatening)
  Sender: FDA-Public Use
  Company Number: PHHY2013IT067343

PATIENT
  Age: 78 Year
  Sex: Male

DRUGS (5)
  1. DICLOFENAC [Suspect]
     Indication: BACK PAIN
     Dosage: 1 DF, DAILY
     Route: 030
     Dates: start: 20130524, end: 20130624
  2. SINEMET [Concomitant]
     Dosage: UNK UKN, UNK
  3. BLOPRESID [Concomitant]
     Dosage: UNK UKN, UNK
  4. AMARYL [Concomitant]
     Dosage: UNK UKN, UNK
  5. METFORMINE [Concomitant]
     Dosage: UNK UKN, UNK

REACTIONS (4)
  - Hypovolaemic shock [Recovering/Resolving]
  - Anaemia [Recovering/Resolving]
  - Duodenal ulcer haemorrhage [Recovering/Resolving]
  - Haemoglobin decreased [Recovering/Resolving]
